FAERS Safety Report 24675907 (Version 1)
Quarter: 2024Q4

REPORT INFORMATION
  Report Type: Spontaneous
  Country: CN (occurrence: CN)
  Receive Date: 20241128
  Receipt Date: 20241128
  Transmission Date: 20250115
  Serious: Yes (Disabling)
  Sender: ELI LILLY AND COMPANY
  Company Number: CN-ELI_LILLY_AND_COMPANY-CN202307017148

PATIENT
  Age: 72 Year
  Sex: Male
  Weight: 85 kg

DRUGS (4)
  1. HUMULIN 70/30 [Suspect]
     Active Substance: INSULIN HUMAN
     Indication: Diabetes mellitus
     Dosage: 18 U, BID
     Route: 058
     Dates: start: 200507, end: 20241118
  2. ACARBOSE [Concomitant]
     Active Substance: ACARBOSE
     Indication: Product used for unknown indication
     Dosage: UNK UNK, UNKNOWN
  3. KALLIDINOGENASE [Concomitant]
     Active Substance: KALLIDINOGENASE
     Indication: Product used for unknown indication
     Dosage: UNK UNK, UNKNOWN
  4. QI JU DI HUANG [Concomitant]
     Indication: Product used for unknown indication
     Dosage: UNK UNK, UNKNOWN
     Route: 065

REACTIONS (5)
  - Blindness [Not Recovered/Not Resolved]
  - Product dose omission issue [Unknown]
  - Blood glucose abnormal [Unknown]
  - Injection site pain [Unknown]
  - Visual impairment [Unknown]

NARRATIVE: CASE EVENT DATE: 20230724
